FAERS Safety Report 6534524-8 (Version None)
Quarter: 2010Q1

REPORT INFORMATION
  Report Type: 
  Country: None (occurrence: None)
  Receive Date: 20100112
  Receipt Date: 20100106
  Transmission Date: 20100710
  Serious: Yes (Hospitalization)
  Sender: FDA-Public Use
  Company Number: FR-JNJFOC-20090905933

PATIENT
  Age: 8 Year
  Sex: Female
  Weight: 24.4 kg

DRUGS (7)
  1. REMICADE [Suspect]
     Route: 042
  2. REMICADE [Suspect]
     Route: 042
  3. REMICADE [Suspect]
     Indication: CROHN'S DISEASE
     Route: 042
  4. IMUREL [Concomitant]
     Indication: CROHN'S DISEASE
     Route: 048
  5. CALCIUM CARBONATE [Concomitant]
     Indication: CROHN'S DISEASE
     Route: 048
  6. TARDYFERON [Concomitant]
     Indication: ANAEMIA
     Route: 048
  7. HYDROCORTISONE [Concomitant]
     Indication: ADRENAL INSUFFICIENCY
     Route: 048

REACTIONS (5)
  - DYSPHAGIA [None]
  - DYSPNOEA [None]
  - INFECTION [None]
  - LARYNGITIS [None]
  - RESPIRATORY DISORDER [None]
